FAERS Safety Report 6206282-8 (Version None)
Quarter: 2009Q2

REPORT INFORMATION
  Report Type: 
  Country: None (occurrence: None)
  Receive Date: 20090528
  Receipt Date: 20090520
  Transmission Date: 20091009
  Serious: Yes (Death, Life-Threatening, Hospitalization)
  Sender: FDA-Public Use
  Company Number: US-ROCHE-617193

PATIENT
  Sex: Male
  Weight: 75.5 kg

DRUGS (3)
  1. MYCOPHENOLATE MOFETIL [Suspect]
     Indication: IMMUNOSUPPRESSION
     Route: 048
     Dates: start: 20071128, end: 20081128
  2. PROGRAF [Concomitant]
     Indication: IMMUNOSUPPRESSION
     Dates: start: 20081130, end: 20081217
  3. PROGRAF [Concomitant]
     Dates: end: 20090302

REACTIONS (5)
  - CARDIAC ARREST [None]
  - MULTI-ORGAN FAILURE [None]
  - OESOPHAGEAL SQUAMOUS CELL CARCINOMA [None]
  - PNEUMONIA [None]
  - RESPIRATORY ARREST [None]
